FAERS Safety Report 6452836-3 (Version None)
Quarter: 2009Q4

REPORT INFORMATION
  Report Type: 
  Country: None (occurrence: None)
  Receive Date: 20091123
  Receipt Date: 20091123
  Transmission Date: 20100525
  Serious: No
  Sender: FDA-Public Use
  Company Number: None

PATIENT
  Sex: Male
  Weight: 77.1115 kg

DRUGS (2)
  1. VYTORIN [Suspect]
     Indication: BLOOD CHOLESTEROL
     Dosage: 1 TABLET PER DAY ABOUT 4 TO 5 YRS
  2. VYTORIN [Suspect]
     Indication: CORONARY ARTERY BYPASS
     Dosage: 1 TABLET PER DAY ABOUT 4 TO 5 YRS

REACTIONS (2)
  - ARTERIAL OCCLUSIVE DISEASE [None]
  - BACK PAIN [None]
